FAERS Safety Report 6875044-0 (Version None)
Quarter: 2010Q3

REPORT INFORMATION
  Report Type: 
  Country: None (occurrence: None)
  Receive Date: 20100727
  Receipt Date: 20100722
  Transmission Date: 20110219
  Serious: Yes (Death, Life-Threatening, Hospitalization, Other)
  Sender: FDA-Public Use
  Company Number: IN-AMGEN-UK241421

PATIENT
  Sex: Male

DRUGS (31)
  1. DENOSUMAB [Suspect]
     Indication: METASTASES TO BONE
     Route: 058
     Dates: start: 20070716, end: 20070818
  2. ZOMETA [Suspect]
     Indication: METASTASES TO BONE
     Route: 042
     Dates: start: 20070716, end: 20070818
  3. NAPROXEN [Suspect]
     Route: 065
     Dates: start: 20070830, end: 20070909
  4. PREDNISOLONE [Concomitant]
     Route: 065
     Dates: start: 20070716, end: 20070825
  5. FURAZOLIDONE CAP [Concomitant]
     Route: 065
     Dates: start: 20070725, end: 20070725
  6. METRONIDAZOLE [Concomitant]
     Route: 065
     Dates: start: 20070725, end: 20070725
  7. PARACETAMOL [Concomitant]
     Route: 065
     Dates: start: 20070725, end: 20070914
  8. METOCLOPRAMIDE [Concomitant]
     Dates: start: 20070725
  9. AMOXICILLIN [Concomitant]
     Route: 065
     Dates: start: 20070813, end: 20070817
  10. CLAVULANATE POTASSIUM [Concomitant]
     Route: 065
     Dates: start: 20070813, end: 20070817
  11. DIPHENHYDRAMINE [Concomitant]
     Route: 065
     Dates: start: 20070813, end: 20070817
  12. IBUPROFEN TABLETS [Concomitant]
     Route: 065
     Dates: start: 20070818, end: 20070828
  13. RANITIDINE [Concomitant]
     Route: 065
     Dates: start: 20070818, end: 20070824
  14. CALCIUM WITH VITAMIN D [Concomitant]
     Route: 065
     Dates: start: 20070716
  15. PARAFFIN, LIQUID [Concomitant]
     Route: 065
     Dates: start: 20070830, end: 20070909
  16. TERBINAFINE HCL [Concomitant]
     Route: 061
     Dates: start: 20070830, end: 20070909
  17. KETOCONOZOLE [Concomitant]
     Route: 065
     Dates: start: 20070903, end: 20070914
  18. DEXAMETHASONE [Concomitant]
     Route: 042
     Dates: start: 20070910, end: 20070912
  19. PHENIRAMINE MALEATE [Concomitant]
     Route: 042
     Dates: start: 20070910, end: 20070911
  20. CALCIUM GLUCONATE [Concomitant]
     Route: 065
     Dates: start: 20070910, end: 20070910
  21. ALPRAZOLAM [Concomitant]
     Route: 065
     Dates: start: 20070912, end: 20070912
  22. CODEINE PHOSPHATE/CHLORPHENIRAMINE MALEATE [Concomitant]
     Route: 065
     Dates: start: 20070913, end: 20070913
  23. FUROSEMIDE [Concomitant]
     Route: 065
     Dates: start: 20070913, end: 20070913
  24. MIDAZOLAM HCL [Concomitant]
     Route: 065
     Dates: start: 20070913, end: 20070913
  25. BUPRENEX [Concomitant]
     Route: 065
     Dates: start: 20070913, end: 20070913
  26. RAMIPRIL [Concomitant]
     Route: 065
     Dates: start: 20070914, end: 20070914
  27. LASIX [Concomitant]
     Route: 065
     Dates: start: 20070914, end: 20070914
  28. CEFOTAXIME SODIUM [Concomitant]
     Route: 042
     Dates: start: 20070914, end: 20070914
  29. POTASSIUM CHLORIDE [Concomitant]
     Route: 065
     Dates: start: 20070914, end: 20070914
  30. BUPRENORPHINE [Concomitant]
     Dates: start: 20070913
  31. PANTOPRAZOLE [Concomitant]
     Dates: start: 20070912, end: 20070914

REACTIONS (26)
  - ACUTE MYOCARDIAL INFARCTION [None]
  - ANAEMIA [None]
  - ASTHENIA [None]
  - BACK PAIN [None]
  - BLOOD CALCIUM DECREASED [None]
  - BLOOD GLUCOSE DECREASED [None]
  - BODY TINEA [None]
  - DISEASE PROGRESSION [None]
  - HAEMOPTYSIS [None]
  - HYPERTENSION [None]
  - MALARIA [None]
  - MULTIPLE MYELOMA [None]
  - MYOCARDIAL INFARCTION [None]
  - NECK PAIN [None]
  - PETECHIAE [None]
  - PULMONARY OEDEMA [None]
  - PYREXIA [None]
  - RESPIRATORY FAILURE [None]
  - SENSORIMOTOR DISORDER [None]
  - SKIN EXFOLIATION [None]
  - SUBARACHNOID HAEMORRHAGE [None]
  - SUBDURAL HAEMORRHAGE [None]
  - TACHYPNOEA [None]
  - THROMBOCYTOPENIA [None]
  - UPPER RESPIRATORY TRACT INFECTION [None]
  - VENTRICULAR TACHYCARDIA [None]
